FAERS Safety Report 8033476-1 (Version None)
Quarter: 2012Q1

REPORT INFORMATION
  Report Type: 
  Country: None (occurrence: None)
  Receive Date: 20120110
  Receipt Date: 20120104
  Transmission Date: 20120608
  Serious: Yes (Hospitalization, Other)
  Sender: FDA-Public Use
  Company Number: US-PFIZER INC-2012003478

PATIENT
  Sex: Female
  Weight: 77.098 kg

DRUGS (3)
  1. LYRICA [Suspect]
     Indication: NEUROPATHY PERIPHERAL
     Dosage: 100 MG, 3X/DAY
  2. LOVAZA [Concomitant]
     Dosage: UNK, 2X/DAY
  3. CYMBALTA [Suspect]
     Dosage: UNK

REACTIONS (6)
  - MUTISM [None]
  - SCHIZOPHRENIA [None]
  - ABNORMAL BEHAVIOUR [None]
  - FEELING ABNORMAL [None]
  - MENTAL DISORDER [None]
  - MEMORY IMPAIRMENT [None]
